FAERS Safety Report 17305948 (Version 1)
Quarter: 2020Q1

REPORT INFORMATION
  Report Type: Spontaneous
  Country: US (occurrence: US)
  Receive Date: 20200106
  Receipt Date: 20200106
  Transmission Date: 20200409
  Serious: Yes (Hospitalization)
  Sender: FDA-Public Use
  Company Number: None

PATIENT
  Age: 43 Year
  Sex: Female

DRUGS (19)
  1. DIAZEPAM. [Concomitant]
     Active Substance: DIAZEPAM
  2. POLYETH GLYC [Concomitant]
     Active Substance: POLYETHYLENE GLYCOLS
  3. QUETIAPINE. [Concomitant]
     Active Substance: QUETIAPINE
  4. SPIRONOLACT [Concomitant]
     Active Substance: SPIRONOLACTONE
  5. HYDROXY/CHLOR [Concomitant]
  6. METOPROL TAR [Concomitant]
  7. OXCARBAZEPIN [Concomitant]
     Active Substance: OXCARBAZEPINE
  8. COSENTYX [Suspect]
     Active Substance: SECUKINUMAB
     Indication: ANKYLOSING SPONDYLITIS
     Route: 058
     Dates: start: 20170803
  9. DULOXETINE. [Concomitant]
     Active Substance: DULOXETINE
  10. NP THYROID [Concomitant]
     Active Substance: LEVOTHYROXINE\LIOTHYRONINE
  11. OXYCODONE [Concomitant]
     Active Substance: OXYCODONE
  12. TIZANIDINE. [Concomitant]
     Active Substance: TIZANIDINE
  13. AMITRIPTYLIN [Concomitant]
     Active Substance: AMITRIPTYLINE
  14. BACLOFEN. [Concomitant]
     Active Substance: BACLOFEN
  15. HYDROCO/APAP [Concomitant]
     Active Substance: ACETAMINOPHEN\HYDROCODONE
  16. GABAPENTIN. [Concomitant]
     Active Substance: GABAPENTIN
  17. PREDNISONE. [Concomitant]
     Active Substance: PREDNISONE
  18. SULFASALAZINE DELAYED-RELEASE [Concomitant]
     Active Substance: SULFASALAZINE
  19. MONTELUKAST [Concomitant]
     Active Substance: MONTELUKAST SODIUM

REACTIONS (1)
  - Granuloma [None]

NARRATIVE: CASE EVENT DATE: 20191213
